FAERS Safety Report 8559536-4 (Version None)
Quarter: 2012Q3

REPORT INFORMATION
  Report Type: 
  Country: None (occurrence: None)
  Receive Date: 20120802
  Receipt Date: 20120723
  Transmission Date: 20120928
  Serious: Yes (Hospitalization)
  Sender: FDA-Public Use
  Company Number: US-BAYER-2012-021927

PATIENT
  Age: 18 Year
  Sex: Female
  Weight: 79.365 kg

DRUGS (14)
  1. DICLOFENAC POTASSIUM [Concomitant]
     Indication: MIGRAINE
     Dosage: UNK
     Dates: start: 20081110, end: 20090914
  2. RELPAX [Concomitant]
     Indication: MIGRAINE
     Dosage: UNK
     Dates: start: 20081110, end: 20090914
  3. TOPAMAX [Concomitant]
     Indication: MIGRAINE
  4. IBUPROFEN (ADVIL) [Concomitant]
     Dosage: UNK
     Dates: start: 20090616
  5. DROSPIRENONE AND ETHINYL ESTRADIOL [Suspect]
     Indication: MENSTRUAL CYCLE MANAGEMENT
     Dosage: UNK
     Dates: start: 20080801, end: 20090601
  6. BOTOX [Concomitant]
     Dosage: UNK
     Dates: start: 20090316
  7. NSAID'S [Concomitant]
     Dosage: OCCASIONALLY AS NEEDED
  8. LORAZEPAM [Concomitant]
     Dosage: ? TABLET AS NEEDED
     Dates: start: 20090616
  9. ASPIRIN [Concomitant]
     Dosage: UNK
     Dates: start: 20090616
  10. YASMIN [Suspect]
     Indication: MENSTRUAL CYCLE MANAGEMENT
     Dosage: UNK
     Dates: start: 20070901, end: 20080701
  11. BOTOX [Concomitant]
     Dosage: UNK
     Dates: start: 20081105
  12. BOTOX [Concomitant]
     Dosage: UNK
     Dates: start: 20091201
  13. BOTOX [Concomitant]
     Dosage: UNK
     Dates: start: 20110422
  14. BOTOX [Concomitant]
     Dosage: UNK
     Dates: start: 20110701

REACTIONS (10)
  - GAIT DISTURBANCE [None]
  - PAIN IN EXTREMITY [None]
  - ANXIETY [None]
  - ANHEDONIA [None]
  - INJURY [None]
  - DEEP VEIN THROMBOSIS [None]
  - PAIN [None]
  - PSYCHOLOGICAL TRAUMA [None]
  - PULMONARY EMBOLISM [None]
  - FEAR [None]
